FAERS Safety Report 23522662 (Version 1)
Quarter: 2024Q1

REPORT INFORMATION
  Report Type: Spontaneous
  Country: US (occurrence: None)
  Receive Date: 20240213
  Receipt Date: 20240213
  Transmission Date: 20240410
  Serious: Yes (Hospitalization)
  Sender: FDA-Public Use
  Company Number: None

PATIENT
  Age: 23 Year
  Sex: Female
  Weight: 99.9 kg

DRUGS (2)
  1. MEDROXYPROGESTERONE ACETATE [Suspect]
     Active Substance: MEDROXYPROGESTERONE ACETATE
     Indication: Contraception
     Dosage: OTHER FREQUENCY : ONCE EVERY 11-13WK;?
     Route: 030
     Dates: start: 20240122, end: 20240122
  2. FAMOTIDINE [Concomitant]
     Active Substance: FAMOTIDINE
     Dates: start: 20231018

REACTIONS (12)
  - Dyspnoea [None]
  - Chest pain [None]
  - Back pain [None]
  - Flushing [None]
  - Syncope [None]
  - Blood pressure increased [None]
  - Heart rate increased [None]
  - Tachycardia [None]
  - Hypotension [None]
  - Vomiting [None]
  - Eye disorder [None]
  - White blood cell disorder [None]

NARRATIVE: CASE EVENT DATE: 20240122
